FAERS Safety Report 10643044 (Version 1)
Quarter: 2014Q4

REPORT INFORMATION
  Report Type: Spontaneous
  Country: US (occurrence: None)
  Receive Date: 20141209
  Receipt Date: 20141209
  Transmission Date: 20150529
  Serious: Yes (Other)
  Sender: FDA-Public Use
  Company Number: None

PATIENT
  Age: 34 Year
  Sex: Female
  Weight: 105.7 kg

DRUGS (2)
  1. VANCOMYCIN [Suspect]
     Active Substance: VANCOMYCIN
     Indication: DIALYSIS
     Dosage: AT 1830  250 ML/HR OVER 2 HRS  IVPB
     Dates: start: 20141112
  2. VANCOMYCIN [Suspect]
     Active Substance: VANCOMYCIN
     Indication: BACTERAEMIA
     Dosage: AT 1830  250 ML/HR OVER 2 HRS  IVPB
     Dates: start: 20141112

REACTIONS (1)
  - Pruritus [None]

NARRATIVE: CASE EVENT DATE: 20141112
